FAERS Safety Report 24155163 (Version 2)
Quarter: 2024Q3

REPORT INFORMATION
  Report Type: Report from Study
  Country: US (occurrence: US)
  Receive Date: 20240731
  Receipt Date: 20240826
  Transmission Date: 20241017
  Serious: Yes (Other)
  Sender: ROCHE
  Company Number: US-ROCHE-3544930

PATIENT
  Age: 29 Year
  Sex: Female
  Weight: 61.69 kg

DRUGS (6)
  1. OCREVUS [Suspect]
     Active Substance: OCRELIZUMAB
     Indication: Relapsing-remitting multiple sclerosis
     Dosage: MOST RECENT DOSE ON 17/APR/2023, 27/OCT/2023
     Route: 042
     Dates: start: 2021
  2. FERINSOL [Concomitant]
  3. NEURONTIN [Concomitant]
     Active Substance: GABAPENTIN
  4. CYANOCOBALAMIN [Concomitant]
     Active Substance: CYANOCOBALAMIN
  5. CHOLECALCIFEROL [Concomitant]
     Active Substance: CHOLECALCIFEROL
  6. CYANOCOBALAMIN [Concomitant]
     Active Substance: CYANOCOBALAMIN

REACTIONS (15)
  - Maternal exposure before pregnancy [Unknown]
  - Arthralgia [Unknown]
  - Paraesthesia [Unknown]
  - Anxiety [Unknown]
  - Depression [Unknown]
  - Neurogenic bladder [Unknown]
  - Gait disturbance [Unknown]
  - Cerebrovascular disorder [Unknown]
  - Carotid artery stenosis [Unknown]
  - Hemiplegia [Unknown]
  - Lumbosacral radiculopathy [Unknown]
  - Back pain [Unknown]
  - Spinal osteoarthritis [Unknown]
  - Drug ineffective [Unknown]
  - Human papilloma virus test positive [Not Recovered/Not Resolved]

NARRATIVE: CASE EVENT DATE: 20210101
